FAERS Safety Report 4686675-0 (Version None)
Quarter: 2005Q2

REPORT INFORMATION
  Report Type: 
  Country: None (occurrence: None)
  Receive Date: 20050608
  Receipt Date: 20050603
  Transmission Date: 20051028
  Serious: Yes (Hospitalization)
  Sender: FDA-Public Use
  Company Number: 2005-129028-NL

PATIENT
  Age: 49 Year
  Sex: Male

DRUGS (13)
  1. MIRTAZAPINE [Suspect]
     Dosage: 30 MG QD, ORAL
     Route: 048
     Dates: start: 20050301
  2. COMBIVIR (SEE ATTACHED PAGES FOR ADDITIONAL SUSPECT DRUGS) [Suspect]
     Dosage: 1 DF BID, ORAL
     Route: 048
     Dates: start: 20050101, end: 20050512
  3. SAQUINAVIR MESILATE (SEE ATTACHED PAGES FOR ADDITIONAL SUSPECT DRUGS) [Suspect]
     Dosage: 200 MG BID, ORAL
     Route: 048
     Dates: end: 20050512
  4. ESOMEPRAZOLE [Suspect]
     Dosage: 40 MG QD, ORAL
     Route: 048
     Dates: start: 20050321
  5. PRDNISONE [Concomitant]
  6. RITONAVIR [Concomitant]
  7. URSODEOXYCHOLIC ACID [Concomitant]
  8. CALCIMAGON-D3 [Concomitant]
  9. POTASSIUM CHLORIDE [Concomitant]
  10. MAGNESIUM ASPARTATE HYDROCHLORIDE [Concomitant]
  11. VITAMINERAL [Concomitant]
  12. METHADONE HCL [Concomitant]
  13. AGAROL [Concomitant]

REACTIONS (5)
  - APLASTIC ANAEMIA [None]
  - BLOOD BILIRUBIN INCREASED [None]
  - BLOOD LACTATE DEHYDROGENASE INCREASED [None]
  - PANCYTOPENIA [None]
  - THROMBOCYTOPENIA [None]
